FAERS Safety Report 16530050 (Version 1)
Quarter: 2019Q3

REPORT INFORMATION
  Report Type: Spontaneous
  Country: DK (occurrence: DK)
  Receive Date: 20190704
  Receipt Date: 20190704
  Transmission Date: 20191004
  Serious: Yes (Life-Threatening, Hospitalization)
  Sender: FDA-Public Use
  Company Number: DK-TEVA-2019-DK-1070595

PATIENT
  Age: 42 Year
  Sex: Male

DRUGS (2)
  1. ENALAPRIL [Suspect]
     Active Substance: ENALAPRIL
     Indication: SUICIDE ATTEMPT
     Dosage: 100 TABLETS
     Route: 048
  2. VERAPAMIL RETARD [Suspect]
     Active Substance: VERAPAMIL HYDROCHLORIDE
     Indication: SUICIDE ATTEMPT
     Dosage: 100 EXTENDED RELEASE TABLETS
     Route: 048

REACTIONS (13)
  - Rhythm idioventricular [Recovering/Resolving]
  - Blood pressure decreased [Recovering/Resolving]
  - Hyperhidrosis [Unknown]
  - Hypervolaemia [Unknown]
  - Bezoar [Unknown]
  - Pulmonary oedema [Unknown]
  - Respiratory failure [Unknown]
  - Overdose [Recovering/Resolving]
  - Atrioventricular block complete [Recovering/Resolving]
  - Electrocardiogram abnormal [Recovering/Resolving]
  - Anuria [Unknown]
  - Suicide attempt [Recovering/Resolving]
  - Mental status changes [Unknown]
